FAERS Safety Report 8183875-2 (Version None)
Quarter: 2012Q1

REPORT INFORMATION
  Report Type: 
  Country: None (occurrence: None)
  Receive Date: 20120305
  Receipt Date: 20120229
  Transmission Date: 20120608
  Serious: Yes (Hospitalization)
  Sender: FDA-Public Use
  Company Number: US-ROCHE-1042343

PATIENT
  Sex: Female

DRUGS (8)
  1. ADVAIR DISKUS 100/50 [Concomitant]
     Dosage: DOSE: 250/50
  2. VASERETIC [Concomitant]
     Dosage: DOSE: 10/25
  3. MOBIC [Concomitant]
     Indication: OSTEOARTHRITIS
  4. BONIVA [Suspect]
     Indication: OSTEOARTHRITIS
     Dates: start: 20061203
  5. PRILOSEC [Concomitant]
     Indication: GASTROOESOPHAGEAL REFLUX DISEASE
  6. SPIRIVA [Concomitant]
     Route: 065
  7. VENTOLIN HFA [Concomitant]
     Route: 065
  8. NEXIUM [Concomitant]
     Route: 065

REACTIONS (1)
  - FEMUR FRACTURE [None]
